FAERS Safety Report 12684935 (Version 6)
Quarter: 2017Q2

REPORT INFORMATION
  Report Type: Spontaneous
  Country: JP (occurrence: JP)
  Receive Date: 20160825
  Receipt Date: 20170403
  Transmission Date: 20170830
  Serious: Yes (Hospitalization, Other)
  Sender: FDA-Public Use
  Company Number: JP-JNJFOC-20160816972

PATIENT
  Age: 9 Month
  Sex: Male

DRUGS (11)
  1. REMICADE [Suspect]
     Active Substance: INFLIXIMAB
     Indication: CROHN^S DISEASE
     Dosage: FIRST DOSE
     Route: 042
     Dates: start: 20140905, end: 20140905
  2. REMICADE [Suspect]
     Active Substance: INFLIXIMAB
     Indication: CROHN^S DISEASE
     Dosage: FIRST DOSE
     Route: 042
     Dates: start: 20140919, end: 20141211
  3. LEVOCARNITINE HYDROCHLORIDE [Concomitant]
     Active Substance: LEVOCARNITINE HYDROCHLORIDE
     Route: 048
  4. BIOTIN [Concomitant]
     Active Substance: BIOTIN
     Route: 048
  5. REMICADE [Suspect]
     Active Substance: INFLIXIMAB
     Indication: CROHN^S DISEASE
     Dosage: FIRST DOSE
     Route: 042
     Dates: start: 20140822, end: 20140822
  6. REMICADE [Suspect]
     Active Substance: INFLIXIMAB
     Indication: CROHN^S DISEASE
     Dosage: FIRST DOSE
     Route: 042
     Dates: start: 20140711, end: 20140711
  7. MIYA-BM [Concomitant]
     Active Substance: CLOSTRIDIUM BUTYRICUM SPORES STRAIN M-55
     Route: 048
  8. PREDNISOLONE. [Concomitant]
     Active Substance: PREDNISOLONE
     Route: 065
  9. SALAZOSULFAPYRIDINE [Concomitant]
     Active Substance: SULFASALAZINE
     Route: 065
  10. SALAZOPYRIN [Concomitant]
     Active Substance: SULFASALAZINE
     Route: 048
     Dates: start: 20140708
  11. FAMOTIDINE. [Concomitant]
     Active Substance: FAMOTIDINE
     Route: 048

REACTIONS (8)
  - Sepsis [Unknown]
  - Crohn^s disease [Unknown]
  - Pyrexia [Recovering/Resolving]
  - Bacteraemia [Recovering/Resolving]
  - Off label use [Unknown]
  - Infusion related reaction [Recovering/Resolving]
  - Pneumonia [Recovering/Resolving]
  - Product use issue [Unknown]

NARRATIVE: CASE EVENT DATE: 20140718
